FAERS Safety Report 9887744 (Version 1)
Quarter: 2014Q1

REPORT INFORMATION
  Report Type: Spontaneous
  Country: US (occurrence: None)
  Receive Date: 20140206
  Receipt Date: 20140206
  Transmission Date: 20141002
  Serious: Yes (Other)
  Sender: FDA-Public Use
  Company Number: PR-AE14-000049

PATIENT
  Age: 41 Year
  Sex: Female

DRUGS (3)
  1. DEBROX [Suspect]
     Indication: CERUMEN REMOVAL
     Dosage: 3-5 DROPS, UNK, OTIC
  2. OXYCODONE [Concomitant]
  3. NEURONTIN (GABAPENTIN) [Concomitant]

REACTIONS (6)
  - Tympanic membrane perforation [None]
  - Ear pain [None]
  - Ear infection [None]
  - Hypoacusis [None]
  - Ear discomfort [None]
  - Otorrhoea [None]
